FAERS Safety Report 10215195 (Version 1)
Quarter: 2014Q2

REPORT INFORMATION
  Report Type: Report from Study
  Country: US (occurrence: US)
  Receive Date: 20140603
  Receipt Date: 20140603
  Transmission Date: 20141212
  Serious: Yes (Other)
  Sender: FDA-Public Use
  Company Number: PHEH2014US010515

PATIENT
  Sex: Female

DRUGS (9)
  1. DIOVAN [Suspect]
     Dosage: UNK UKN, QD
     Route: 048
  2. BUSPIRONE [Concomitant]
     Dosage: UNK UKN, UNK
  3. CALCIUM [Concomitant]
     Dosage: UNK UKN, UNK
  4. GABAPENTIN [Concomitant]
     Dosage: UNK UKN, UNK
  5. OMEPRAZOLE [Concomitant]
     Dosage: UNK UKN, UNK
  6. PAROXETIN [Concomitant]
     Dosage: UNK UKN, UNK
  7. QUETIAPINE [Concomitant]
     Dosage: UNK UKN, UNK
  8. CLOTRIM [Concomitant]
     Dosage: UNK UKN, UNK
  9. VITAMIN D [Concomitant]
     Dosage: UNK UKN, UNK

REACTIONS (24)
  - Fall [Unknown]
  - Femur fracture [Unknown]
  - Dementia [Unknown]
  - Delirium [Unknown]
  - Sciatic nerve injury [Unknown]
  - Charles Bonnet syndrome [Unknown]
  - Cognitive disorder [Unknown]
  - Hallucination [Unknown]
  - Blood brain barrier defect [Unknown]
  - Neuropathy peripheral [Unknown]
  - Blindness [Unknown]
  - Erythema [Unknown]
  - Pain [Unknown]
  - Balance disorder [Unknown]
  - Anaemia [Unknown]
  - Muscular weakness [Unknown]
  - Dysstasia [Unknown]
  - Urinary tract infection [Unknown]
  - Urinary incontinence [Unknown]
  - Myalgia [Unknown]
  - Rash [Unknown]
  - Dizziness [Unknown]
  - Renal impairment [Unknown]
  - Blood creatinine increased [Unknown]
